FAERS Safety Report 6407119-4 (Version None)
Quarter: 2009Q4

REPORT INFORMATION
  Report Type: 
  Country: None (occurrence: None)
  Receive Date: 20091014
  Receipt Date: 20090526
  Transmission Date: 20100525
  Serious: Yes (Death)
  Sender: FDA-Public Use
  Company Number: SE-WYE-H09477609

PATIENT
  Age: 50 Year
  Sex: Female
  Weight: 45 kg

DRUGS (9)
  1. METHYLTREXONE [Suspect]
     Indication: CONSTIPATION
     Dosage: DOSE UNSPECIFIED, EVERY OTHER DAY, SUBCUTANEOUS
     Route: 058
     Dates: start: 20090515, end: 20090524
  2. DICLOFENAC (DICLOFENAC,  ) [Suspect]
     Indication: PROPHYLAXIS
     Dates: start: 20090409, end: 20090522
  3. PREDNISOLONE [Suspect]
     Dates: start: 20090403, end: 20090522
  4. PARACETAMOL (PARACETAMOL) [Concomitant]
  5. MORPHINE [Concomitant]
  6. OMEPRAZOLE [Concomitant]
  7. AMITRIPTYLINE HYDROCHLORIDE [Concomitant]
  8. EFFEXOR [Concomitant]
  9. ACETYLCYSTEINE [Concomitant]

REACTIONS (4)
  - GASTRIC ULCER PERFORATION [None]
  - GENERAL PHYSICAL HEALTH DETERIORATION [None]
  - INTESTINAL PERFORATION [None]
  - PERITONITIS [None]
